FAERS Safety Report 20476747 (Version 2)
Quarter: 2022Q1

REPORT INFORMATION
  Report Type: Spontaneous
  Country: US (occurrence: US)
  Receive Date: 20220215
  Receipt Date: 20220218
  Transmission Date: 20220424
  Serious: No
  Sender: FDA-Public Use
  Company Number: US-SA-SAC20220208001492

PATIENT
  Sex: Male

DRUGS (9)
  1. DUPIXENT [Suspect]
     Active Substance: DUPILUMAB
     Indication: Asthma
     Dosage: 300 MG, QOW
     Route: 058
  2. FERROUS SULFATE [Concomitant]
     Active Substance: FERROUS SULFATE
  3. EXCEDRIN EXTRA STRENGTH [Concomitant]
     Active Substance: ACETAMINOPHEN\ASPIRIN\CAFFEINE
  4. SUMATRIPTAN [Concomitant]
     Active Substance: SUMATRIPTAN
  5. BUTALBITAL [Concomitant]
     Active Substance: BUTALBITAL
  6. PROPRANOLOL HYDROCHLORIDE [Concomitant]
     Active Substance: PROPRANOLOL HYDROCHLORIDE
  7. ATORVASTATIN CALCIUM [Concomitant]
     Active Substance: ATORVASTATIN CALCIUM
  8. CLOPIDOGREL [Concomitant]
     Active Substance: CLOPIDOGREL BISULFATE
  9. ADVAIR HFA [Concomitant]
     Active Substance: FLUTICASONE PROPIONATE\SALMETEROL XINAFOATE

REACTIONS (11)
  - Illness [Unknown]
  - Discomfort [Unknown]
  - Pain [Unknown]
  - White blood cell count increased [Unknown]
  - Anaemia [Unknown]
  - Red blood cell count decreased [Unknown]
  - Product use in unapproved indication [Unknown]
  - Asthma-chronic obstructive pulmonary disease overlap syndrome [Unknown]
  - Migraine [Unknown]
  - Vomiting [Unknown]
  - Product use issue [Unknown]
